FAERS Safety Report 8617556 (Version 2)
Quarter: 2013Q2

REPORT INFORMATION
  Report Type: Spontaneous
  Country: US (occurrence: US)
  Receive Date: 20120615
  Receipt Date: 20130502
  Transmission Date: 20140414
  Serious: Yes (Hospitalization, Other)
  Sender: FDA-Public Use
  Company Number: US-ROCHE-1078145

PATIENT
  Age: 32 Year
  Sex: Male

DRUGS (2)
  1. ACCUTANE [Suspect]
     Indication: ACNE
     Route: 048
     Dates: start: 19970725, end: 19971023
  2. ACCUTANE [Suspect]
     Route: 048
     Dates: start: 2005, end: 2006

REACTIONS (6)
  - Irritable bowel syndrome [Unknown]
  - Crohn^s disease [Unknown]
  - Inflammatory bowel disease [Unknown]
  - Injury [Unknown]
  - Rectal polyp [Unknown]
  - Depression [Unknown]
